FAERS Safety Report 12840338 (Version 1)
Quarter: 2016Q4

REPORT INFORMATION
  Report Type: Spontaneous
  Country: US (occurrence: US)
  Receive Date: 20161012
  Receipt Date: 20161012
  Transmission Date: 20170207
  Serious: Yes (Other)
  Sender: FDA-Public Use
  Company Number: US-ELI_LILLY_AND_COMPANY-US201610000755

PATIENT
  Sex: Male

DRUGS (2)
  1. ANGIOMAX [Concomitant]
     Active Substance: BIVALIRUDIN
     Indication: STENT PLACEMENT
     Dosage: UNK, UNKNOWN
     Route: 065
  2. EFFIENT [Suspect]
     Active Substance: PRASUGREL HYDROCHLORIDE
     Indication: STENT PLACEMENT
     Dosage: 1 DF, SINGLE
     Route: 065
     Dates: start: 201310, end: 201310

REACTIONS (4)
  - Vascular stent thrombosis [Recovered/Resolved]
  - Chest pain [Recovered/Resolved]
  - Nausea [Recovered/Resolved]
  - Vomiting [Recovered/Resolved]

NARRATIVE: CASE EVENT DATE: 201310
